FAERS Safety Report 14541758 (Version 1)
Quarter: 2018Q1

REPORT INFORMATION
  Report Type: Spontaneous
  Country: CA (occurrence: CA)
  Receive Date: 20180216
  Receipt Date: 20180216
  Transmission Date: 20180509
  Serious: Yes (Hospitalization)
  Sender: FDA-Public Use
  Company Number: CA-JNJFOC-20180214023

PATIENT
  Sex: Female

DRUGS (1)
  1. MICRONOR [Suspect]
     Active Substance: NORETHINDRONE
     Indication: ORAL CONTRACEPTION
     Route: 065
     Dates: start: 201710, end: 20180112

REACTIONS (3)
  - Amenorrhoea [Not Recovered/Not Resolved]
  - Seizure [Unknown]
  - Hypoglycaemia [Unknown]
